FAERS Safety Report 8876631 (Version 1)
Quarter: 2012Q4

REPORT INFORMATION
  Report Type: 
  Country: JP (occurrence: JP)
  Receive Date: 20121030
  Receipt Date: 20121030
  Transmission Date: 20130627
  Serious: Yes (Death, Other)
  Sender: FDA-Public Use
  Company Number: JP-JNJFOC-20121015506

PATIENT
  Age: 84 Year
  Sex: Female

DRUGS (1)
  1. TRAMCET [Suspect]
     Indication: PAIN
     Dosage: 2 per day
     Route: 048
     Dates: start: 20121016, end: 20121019

REACTIONS (2)
  - Marasmus [Fatal]
  - Dyspnoea [Unknown]
